FAERS Safety Report 8138807-X (Version None)
Quarter: 2012Q1

REPORT INFORMATION
  Report Type: 
  Country: None (occurrence: None)
  Receive Date: 20120215
  Receipt Date: 20120208
  Transmission Date: 20120608
  Serious: Yes (Other)
  Sender: FDA-Public Use
  Company Number: JP-PFIZER INC-2012033776

PATIENT
  Age: 74 Year
  Sex: Female

DRUGS (1)
  1. SULFASALAZINE [Suspect]
     Indication: ENTEROCOLITIS

REACTIONS (3)
  - STAPHYLOCOCCAL INFECTION [None]
  - ANAEMIA [None]
  - PANCYTOPENIA [None]
